FAERS Safety Report 5768644-2 (Version None)
Quarter: 2008Q2

REPORT INFORMATION
  Report Type: 
  Country: None (occurrence: None)
  Receive Date: 20080612
  Receipt Date: 20080310
  Transmission Date: 20081010
  Serious: No
  Sender: FDA-Public Use
  Company Number: US-ABBOTT-08P-163-0441810-00

PATIENT
  Sex: Female
  Weight: 56.296 kg

DRUGS (5)
  1. HUMIRA [Suspect]
     Indication: CROHN'S DISEASE
     Dosage: STARTER DOSE
     Route: 058
     Dates: start: 20080222
  2. HUMIRA [Suspect]
  3. HUMIRA [Suspect]
  4. TOPIRAMATE [Concomitant]
     Indication: CONVULSION
     Route: 048
  5. AZATHIOPRINE [Concomitant]
     Indication: CROHN'S DISEASE
     Route: 048

REACTIONS (1)
  - ACCIDENTAL EXPOSURE [None]
